FAERS Safety Report 4655584-5 (Version None)
Quarter: 2005Q2

REPORT INFORMATION
  Report Type: 
  Country: None (occurrence: None)
  Receive Date: 20050505
  Receipt Date: 20050421
  Transmission Date: 20051028
  Serious: Yes (Other)
  Sender: FDA-Public Use
  Company Number: 2005032949

PATIENT
  Age: 65 Year
  Sex: Female
  Weight: 90.7194 kg

DRUGS (5)
  1. DETROL LA [Suspect]
     Dosage: 4 MG (4 MG, 1 IN 1 D), ORAL
     Route: 048
     Dates: start: 20041222, end: 20050320
  2. BEE POLLEN (BEE POLLEN) [Suspect]
     Indication: ILL-DEFINED DISORDER
     Dosage: ORAL
     Route: 048
  3. CHELATION THERAPY (CHELATION THERAPY) [Suspect]
     Indication: ILL-DEFINED DISORDER
     Dosage: UNKNOWN
     Route: 065
  4. HERBAL PREPARATION (HERBAL PREPARATION) [Concomitant]
  5. POTASSIUM ACETATE [Concomitant]

REACTIONS (18)
  - ANGIONEUROTIC OEDEMA [None]
  - BLISTER [None]
  - BLOOD PRESSURE INCREASED [None]
  - DRUG INTERACTION [None]
  - DRY SKIN [None]
  - ERYTHEMA [None]
  - EYE SWELLING [None]
  - HYPERSENSITIVITY [None]
  - INSOMNIA [None]
  - OBSTRUCTIVE AIRWAYS DISORDER [None]
  - PARAESTHESIA ORAL [None]
  - PHARYNGEAL OEDEMA [None]
  - PRURITUS [None]
  - RASH [None]
  - RASH SCALY [None]
  - SKIN WARM [None]
  - THROAT TIGHTNESS [None]
  - TREMOR [None]
